FAERS Safety Report 7644131-1 (Version None)
Quarter: 2011Q3

REPORT INFORMATION
  Report Type: 
  Country: None (occurrence: None)
  Receive Date: 20110729
  Receipt Date: 20110727
  Transmission Date: 20111222
  Serious: Yes (Death)
  Sender: FDA-Public Use
  Company Number: PH-B.I. PHARMACEUTICALS,INC./RIDGEFIELD-2011-CS-00580CS

PATIENT
  Sex: Male

DRUGS (3)
  1. ALBUTEROL [Suspect]
     Indication: BRONCHIECTASIS
     Dosage: 1~2 PUFFS
     Route: 055
     Dates: start: 20100626, end: 20110625
  2. SERETIDE [Suspect]
     Indication: BRONCHIECTASIS
     Dosage: 25/250MCG, 100/1000MCG
     Route: 055
     Dates: start: 20100626, end: 20110625
  3. SPIRIVA [Suspect]
     Indication: ANTICHOLINERGIC SYNDROME
     Dosage: 18 MCG
     Route: 048
     Dates: start: 20100626, end: 20110625

REACTIONS (2)
  - CHRONIC OBSTRUCTIVE PULMONARY DISEASE [None]
  - RESPIRATORY ARREST [None]
